FAERS Safety Report 21555007 (Version 4)
Quarter: 2023Q1

REPORT INFORMATION
  Report Type: Spontaneous
  Country: US (occurrence: US)
  Receive Date: 20221104
  Receipt Date: 20230104
  Transmission Date: 20230417
  Serious: Yes (Death, Hospitalization, Other)
  Sender: FDA-Public Use
  Company Number: US-PFIZER INC-PV202200096033

PATIENT
  Age: 67 Year
  Sex: Male

DRUGS (2)
  1. METHOTREXATE SODIUM [Suspect]
     Active Substance: METHOTREXATE SODIUM
     Indication: Psoriasis
     Dosage: 10 MG, WEEKLY
  2. METHOTREXATE SODIUM [Suspect]
     Active Substance: METHOTREXATE SODIUM
     Indication: Psoriatic arthropathy

REACTIONS (13)
  - Pancytopenia [Fatal]
  - Respiratory failure [Fatal]
  - Multiple organ dysfunction syndrome [Fatal]
  - Hypertransaminasaemia [Fatal]
  - Oral mucosa erosion [Unknown]
  - Cholestatic liver injury [Unknown]
  - Blister [Unknown]
  - Skin erosion [Unknown]
  - Mental impairment [Unknown]
  - Neutropenia [Unknown]
  - Toxicity to various agents [Unknown]
  - Mucocutaneous ulceration [Unknown]
  - Scrotal ulcer [Unknown]
